FAERS Safety Report 25849241 (Version 1)
Quarter: 2025Q3

REPORT INFORMATION
  Report Type: Spontaneous
  Country: CA (occurrence: CA)
  Receive Date: 20250925
  Receipt Date: 20250925
  Transmission Date: 20251020
  Serious: Yes (Other)
  Sender: CELLTRION
  Company Number: CA-CELLTRION INC.-2024CA029104

PATIENT

DRUGS (2)
  1. YUFLYMA [Suspect]
     Active Substance: ADALIMUMAB-AATY
     Indication: Hidradenitis
     Dosage: 80 MG, WEEKLY
     Route: 058
     Dates: start: 20241031
  2. YUFLYMA [Suspect]
     Active Substance: ADALIMUMAB-AATY

REACTIONS (2)
  - Surgery [Unknown]
  - Off label use [Unknown]

NARRATIVE: CASE EVENT DATE: 20241031
